FAERS Safety Report 8380556-7 (Version None)
Quarter: 2012Q2

REPORT INFORMATION
  Report Type: 
  Country: None (occurrence: None)
  Receive Date: 20120515
  Receipt Date: 20120503
  Transmission Date: 20120825
  Serious: Yes (Hospitalization)
  Sender: FDA-Public Use
  Company Number: 2012032222

PATIENT
  Sex: Female

DRUGS (1)
  1. ZEMAIRA [Suspect]
     Dosage: SINCE APR-2012, 1009 MG X 4 VIALS, INTRAVENOUS, (NOT OTHERWISE SPECIFIED))
     Route: 042

REACTIONS (4)
  - PNEUMONIA [None]
  - MUSCLE SPASMS [None]
  - DYSPNOEA [None]
  - CHEST DISCOMFORT [None]
